FAERS Safety Report 7073178-1 (Version None)
Quarter: 2010Q4

REPORT INFORMATION
  Report Type: 
  Country: None (occurrence: None)
  Receive Date: 20101028
  Receipt Date: 20101028
  Transmission Date: 20110411
  Serious: Yes (Hospitalization, Other)
  Sender: FDA-Public Use
  Company Number: None

PATIENT
  Age: 62 Year
  Sex: Female
  Weight: 37.6486 kg

DRUGS (1)
  1. VIMPAT [Suspect]
     Indication: CONVULSION
     Dosage: 50MG ONCE A DAY PO
     Route: 048
     Dates: start: 20090626, end: 20090627

REACTIONS (3)
  - CONTUSION [None]
  - MENTAL STATUS CHANGES [None]
  - PSYCHOTIC DISORDER [None]
